FAERS Safety Report 8454371-X (Version None)
Quarter: 2012Q2

REPORT INFORMATION
  Report Type: 
  Country: None (occurrence: None)
  Receive Date: 20120621
  Receipt Date: 20120618
  Transmission Date: 20120825
  Serious: Yes (Death)
  Sender: FDA-Public Use
  Company Number: US-AMGEN-USASP2011062161

PATIENT
  Age: 56 Year
  Sex: Male

DRUGS (2)
  1. NPLATE [Suspect]
     Indication: THROMBOCYTOPENIA
     Dosage: 100 MUG, UNK
     Dates: start: 20100527, end: 20110105
  2. ANTINEOPLASTIC AGENTS [Concomitant]
     Indication: COLON CANCER METASTATIC

REACTIONS (1)
  - METASTATIC NEOPLASM [None]
